FAERS Safety Report 19165161 (Version 3)
Quarter: 2022Q1

REPORT INFORMATION
  Report Type: Report from Study
  Country: TH (occurrence: TH)
  Receive Date: 20210421
  Receipt Date: 20220129
  Transmission Date: 20220423
  Serious: Yes (Other)
  Sender: FDA-Public Use
  Company Number: TH-NOVARTISPH-NVSC2021TH002041

PATIENT
  Sex: Male

DRUGS (7)
  1. ENTRESTO [Suspect]
     Active Substance: SACUBITRIL\VALSARTAN
     Indication: Cardiac failure
     Dosage: 0.5 DOSAGE FORM (100 MG), BID (AFTER MEAL MORNING AND EVENING)
     Route: 048
  2. ENTRESTO [Suspect]
     Active Substance: SACUBITRIL\VALSARTAN
     Dosage: 0.5 DOSAGE FORM (50 MG), QD (DAILY MORNING)
     Route: 048
  3. ENTRESTO [Suspect]
     Active Substance: SACUBITRIL\VALSARTAN
     Dosage: 0.5 DOSAGE FORM (50 MG), BID
     Route: 065
  4. LASIX [Concomitant]
     Active Substance: FUROSEMIDE
     Indication: Product used for unknown indication
     Dosage: 1 DOSAGE FORM, QD (AFTER MEAL MORNING)
     Route: 065
  5. LASIX [Concomitant]
     Active Substance: FUROSEMIDE
     Dosage: QD, (HALF OF TABLET ONCE DAILY AFTER BREAKFAST)
     Route: 048
  6. SPIRONOLACTONE [Concomitant]
     Active Substance: SPIRONOLACTONE
     Indication: Product used for unknown indication
     Dosage: 0.5 DOSAGE FORM (25 MG), QD (ONE TIME DAILY AFTER MEAL)
     Route: 048
  7. SPIRONOLACTONE [Concomitant]
     Active Substance: SPIRONOLACTONE
     Dosage: QD, (HALF OF TABLET ONCE DAILY AFTER BREAKFAST)
     Route: 048

REACTIONS (11)
  - Cardiac failure congestive [Unknown]
  - Aortic valve incompetence [Unknown]
  - Congestive cardiomyopathy [Unknown]
  - Left ventricular hypertrophy [Unknown]
  - Cardiovascular disorder [Unknown]
  - Low density lipoprotein increased [Unknown]
  - Fatigue [Unknown]
  - Underdose [Unknown]
  - Inappropriate schedule of product administration [Unknown]
  - Wrong technique in product usage process [Unknown]
  - Product prescribing error [Unknown]
